FAERS Safety Report 22335816 (Version 1)
Quarter: 2023Q2

REPORT INFORMATION
  Report Type: Spontaneous
  Country: CA (occurrence: CA)
  Receive Date: 20230518
  Receipt Date: 20230518
  Transmission Date: 20230722
  Serious: Yes (Death, Other)
  Sender: FDA-Public Use
  Company Number: CA-JNJFOC-20230535826

PATIENT
  Sex: Female

DRUGS (104)
  1. REMICADE [Suspect]
     Active Substance: INFLIXIMAB
     Indication: Product used for unknown indication
     Route: 041
  2. CETIRIZINE HYDROCHLORIDE [Suspect]
     Active Substance: CETIRIZINE HYDROCHLORIDE
     Indication: Product used for unknown indication
     Route: 065
  3. TYLENOL [Suspect]
     Active Substance: ACETAMINOPHEN
     Indication: Product used for unknown indication
     Route: 065
  4. MONTELUKAST SODIUM [Suspect]
     Active Substance: MONTELUKAST SODIUM
     Indication: Product used for unknown indication
     Route: 065
  5. SINGULAIR [Suspect]
     Active Substance: MONTELUKAST SODIUM
     Indication: Product used for unknown indication
     Route: 065
  6. ABACAVIR [Suspect]
     Active Substance: ABACAVIR
     Indication: Product used for unknown indication
     Route: 065
  7. OXYCODONE HYDROCHLORIDE [Suspect]
     Active Substance: OXYCODONE HYDROCHLORIDE
     Indication: Product used for unknown indication
     Route: 065
  8. OXYCODONE HYDROCHLORIDE [Suspect]
     Active Substance: OXYCODONE HYDROCHLORIDE
     Route: 065
  9. OXYCODONE HYDROCHLORIDE [Suspect]
     Active Substance: OXYCODONE HYDROCHLORIDE
     Route: 065
  10. ABACAVIR SULFATE [Suspect]
     Active Substance: ABACAVIR SULFATE
     Indication: Product used for unknown indication
     Route: 065
  11. ABACAVIR SULFATE [Suspect]
     Active Substance: ABACAVIR SULFATE
     Route: 065
  12. ABACAVIR SULFATE [Suspect]
     Active Substance: ABACAVIR SULFATE
     Route: 065
  13. ACETAMINOPHEN [Suspect]
     Active Substance: ACETAMINOPHEN
     Indication: Product used for unknown indication
     Route: 065
  14. ACETAMINOPHEN [Suspect]
     Active Substance: ACETAMINOPHEN
     Route: 065
  15. ACETAMINOPHEN [Suspect]
     Active Substance: ACETAMINOPHEN
     Route: 065
  16. ACETAMINOPHEN [Suspect]
     Active Substance: ACETAMINOPHEN
     Route: 065
  17. CODEINE PHOSPHATE [Suspect]
     Active Substance: CODEINE PHOSPHATE
     Indication: Product used for unknown indication
     Route: 065
  18. DOLUTEGRAVIR SODIUM [Suspect]
     Active Substance: DOLUTEGRAVIR SODIUM
     Indication: Product used for unknown indication
     Route: 065
  19. LAMIVUDINE [Suspect]
     Active Substance: LAMIVUDINE
     Indication: Product used for unknown indication
     Route: 065
  20. ACTEMRA [Suspect]
     Active Substance: TOCILIZUMAB
     Indication: Rheumatoid arthritis
     Route: 058
  21. ADVAIR HFA [Suspect]
     Active Substance: FLUTICASONE PROPIONATE\SALMETEROL XINAFOATE
     Indication: Product used for unknown indication
     Route: 065
  22. ALBUTEROL SULFATE [Suspect]
     Active Substance: ALBUTEROL SULFATE
     Indication: Product used for unknown indication
     Route: 065
  23. ALBUTEROL [Suspect]
     Active Substance: ALBUTEROL
     Indication: Product used for unknown indication
     Route: 065
  24. ALPRAZOLAM [Suspect]
     Active Substance: ALPRAZOLAM
     Indication: Product used for unknown indication
     Route: 048
  25. BUPROPION [Suspect]
     Active Substance: BUPROPION
     Indication: Product used for unknown indication
     Route: 065
  26. BUPROPION [Suspect]
     Active Substance: BUPROPION
     Route: 065
  27. BUPROPION [Suspect]
     Active Substance: BUPROPION
     Route: 065
  28. BUPROPION HYDROCHLORIDE [Suspect]
     Active Substance: BUPROPION HYDROCHLORIDE
     Indication: Product used for unknown indication
     Route: 065
  29. CHLORMEZANONE [Suspect]
     Active Substance: CHLORMEZANONE
     Indication: Product used for unknown indication
     Route: 065
  30. CITALOPRAM HYDROBROMIDE [Suspect]
     Active Substance: CITALOPRAM HYDROBROMIDE
     Indication: Product used for unknown indication
     Route: 065
  31. CLONIDINE [Suspect]
     Active Substance: CLONIDINE
     Indication: Eczema
     Route: 065
  32. CLONIDINE HYDROCHLORIDE [Suspect]
     Active Substance: CLONIDINE HYDROCHLORIDE
     Indication: Product used for unknown indication
     Route: 065
  33. CODEINE [Suspect]
     Active Substance: CODEINE
     Indication: Product used for unknown indication
     Route: 065
  34. CYCLOBENZAPRINE [Suspect]
     Active Substance: CYCLOBENZAPRINE
     Indication: Eczema
     Route: 065
  35. DEMEROL [Suspect]
     Active Substance: MEPERIDINE HYDROCHLORIDE
     Indication: Product used for unknown indication
     Route: 065
  36. DICLOFENAC SODIUM [Suspect]
     Active Substance: DICLOFENAC SODIUM
     Indication: Product used for unknown indication
     Route: 065
  37. DICLOFENAC SODIUM [Suspect]
     Active Substance: DICLOFENAC SODIUM
     Route: 065
  38. DICLOFENAC SODIUM [Suspect]
     Active Substance: DICLOFENAC SODIUM
     Route: 065
  39. DICLOFENAC SODIUM [Suspect]
     Active Substance: DICLOFENAC SODIUM
     Route: 065
  40. DICLOFENAC SODIUM [Suspect]
     Active Substance: DICLOFENAC SODIUM
     Route: 065
  41. DIPHENHYDRAMINE [Suspect]
     Active Substance: DIPHENHYDRAMINE
     Indication: Product used for unknown indication
     Route: 065
  42. DIPHENHYDRAMINE [Suspect]
     Active Substance: DIPHENHYDRAMINE
     Route: 065
  43. DOLUTEGRAVIR SODIUM [Suspect]
     Active Substance: DOLUTEGRAVIR SODIUM
     Indication: Product used for unknown indication
     Route: 065
  44. DOLUTEGRAVIR SODIUM [Suspect]
     Active Substance: DOLUTEGRAVIR SODIUM
     Route: 065
  45. DOLUTEGRAVIR SODIUM [Suspect]
     Active Substance: DOLUTEGRAVIR SODIUM
     Route: 065
  46. DOLUTEGRAVIR SODIUM [Suspect]
     Active Substance: DOLUTEGRAVIR SODIUM
     Route: 065
  47. ENBREL [Suspect]
     Active Substance: ETANERCEPT
     Indication: Rheumatoid arthritis
     Route: 065
  48. FLOVENT [Suspect]
     Active Substance: FLUTICASONE PROPIONATE
     Indication: Product used for unknown indication
     Dosage: INHALATION
     Route: 065
  49. FLOVENT [Suspect]
     Active Substance: FLUTICASONE PROPIONATE
     Dosage: INHALATION
     Route: 065
  50. FLOVENT [Suspect]
     Active Substance: FLUTICASONE PROPIONATE
     Dosage: INHALATION
     Route: 065
  51. FLUCONAZOLE [Suspect]
     Active Substance: FLUCONAZOLE
     Indication: Product used for unknown indication
     Route: 065
  52. FLUCONAZOLE [Suspect]
     Active Substance: FLUCONAZOLE
     Route: 065
  53. FLUCONAZOLE [Suspect]
     Active Substance: FLUCONAZOLE
     Route: 065
  54. FLUTICASONE PROPIONATE [Suspect]
     Active Substance: FLUTICASONE PROPIONATE
     Indication: Product used for unknown indication
     Route: 065
  55. FUROSEMIDE [Suspect]
     Active Substance: FUROSEMIDE
     Indication: Product used for unknown indication
     Route: 065
  56. FUROSEMIDE [Suspect]
     Active Substance: FUROSEMIDE
     Route: 065
  57. FUROSEMIDE [Suspect]
     Active Substance: FUROSEMIDE
     Route: 065
  58. GABAPENTIN [Suspect]
     Active Substance: GABAPENTIN
     Indication: Product used for unknown indication
     Route: 065
  59. GABAPENTIN [Suspect]
     Active Substance: GABAPENTIN
     Route: 065
  60. GABAPENTIN [Suspect]
     Active Substance: GABAPENTIN
     Route: 065
  61. HUMIRA [Suspect]
     Active Substance: ADALIMUMAB
     Indication: Product used for unknown indication
     Route: 058
  62. HYDROMORPHONE [Suspect]
     Active Substance: HYDROMORPHONE
     Indication: Product used for unknown indication
     Route: 065
  63. HYDROMORPHONE HYDROCHLORIDE [Suspect]
     Active Substance: HYDROMORPHONE HYDROCHLORIDE
     Indication: Product used for unknown indication
     Route: 065
  64. KETOPROFEN [Suspect]
     Active Substance: KETOPROFEN
     Indication: Product used for unknown indication
     Route: 065
  65. METHYLPREDNISOLONE ACETATE [Suspect]
     Active Substance: METHYLPREDNISOLONE ACETATE
     Indication: Product used for unknown indication
     Route: 065
  66. METHYLPREDNISOLONE SODIUM SUCCINATE [Suspect]
     Active Substance: METHYLPREDNISOLONE SODIUM SUCCINATE
     Indication: Product used for unknown indication
     Route: 065
  67. MORPHINE SULFATE [Suspect]
     Active Substance: MORPHINE SULFATE
     Indication: Product used for unknown indication
     Route: 065
  68. MOXIFLOXACIN HYDROCHLORIDE [Suspect]
     Active Substance: MOXIFLOXACIN HYDROCHLORIDE
     Indication: Product used for unknown indication
     Route: 058
  69. NORTRIPTYLINE [Suspect]
     Active Substance: NORTRIPTYLINE
     Indication: Product used for unknown indication
     Route: 065
  70. NORTRIPTYLINE [Suspect]
     Active Substance: NORTRIPTYLINE
     Route: 065
  71. ONDANSETRON [Suspect]
     Active Substance: ONDANSETRON
     Indication: Product used for unknown indication
     Route: 065
  72. ONDANSETRON [Suspect]
     Active Substance: ONDANSETRON
     Route: 065
  73. ONDANSETRON [Suspect]
     Active Substance: ONDANSETRON
     Route: 065
  74. ONDANSETRON HYDROCHLORIDE [Suspect]
     Active Substance: ONDANSETRON HYDROCHLORIDE
     Indication: Product used for unknown indication
     Route: 065
  75. ORENCIA [Suspect]
     Active Substance: ABATACEPT
     Indication: Product used for unknown indication
     Route: 065
  76. PANTOPRAZOLE MAGNESIUM [Suspect]
     Active Substance: PANTOPRAZOLE MAGNESIUM
     Indication: Product used for unknown indication
     Route: 065
  77. PANTOPRAZOLE SODIUM [Suspect]
     Active Substance: PANTOPRAZOLE SODIUM
     Indication: Product used for unknown indication
     Route: 065
  78. PROGESTERONE [Suspect]
     Active Substance: PROGESTERONE
     Indication: Product used for unknown indication
     Route: 030
  79. QUETIAPINE FUMARATE [Suspect]
     Active Substance: QUETIAPINE FUMARATE
     Indication: Product used for unknown indication
     Route: 048
  80. QUETIAPINE FUMARATE [Suspect]
     Active Substance: QUETIAPINE FUMARATE
     Route: 048
  81. QUETIAPINE FUMARATE [Suspect]
     Active Substance: QUETIAPINE FUMARATE
     Route: 048
  82. RANITIDINE HYDROCHLORIDE [Suspect]
     Active Substance: RANITIDINE HYDROCHLORIDE
     Indication: Product used for unknown indication
     Route: 065
  83. CETIRIZINE HYDROCHLORIDE [Suspect]
     Active Substance: CETIRIZINE HYDROCHLORIDE
     Indication: Product used for unknown indication
     Route: 065
  84. RESTORIL [Suspect]
     Active Substance: TEMAZEPAM
     Indication: Product used for unknown indication
     Route: 065
  85. RITUXIMAB [Suspect]
     Active Substance: RITUXIMAB
     Indication: Rheumatoid arthritis
     Route: 042
  86. ALBUTEROL [Suspect]
     Active Substance: ALBUTEROL
     Indication: Product used for unknown indication
     Route: 065
  87. ALBUTEROL [Suspect]
     Active Substance: ALBUTEROL
     Route: 065
  88. ALBUTEROL [Suspect]
     Active Substance: ALBUTEROL
     Route: 065
  89. SENNA LEAF [Suspect]
     Active Substance: SENNA LEAF
     Indication: Product used for unknown indication
     Route: 065
  90. SENNA LEAF [Suspect]
     Active Substance: SENNA LEAF
     Indication: Product used for unknown indication
     Route: 048
  91. SENNOSIDES [Suspect]
     Active Substance: SENNOSIDES
     Indication: Product used for unknown indication
     Route: 065
  92. SENNOSIDES [Suspect]
     Active Substance: SENNOSIDES
     Route: 065
  93. SENOKOT [Suspect]
     Active Substance: SENNOSIDES
     Indication: Product used for unknown indication
     Route: 065
  94. TEMAZEPAM [Suspect]
     Active Substance: TEMAZEPAM
     Indication: Product used for unknown indication
     Route: 065
  95. VENLAFAXINE [Suspect]
     Active Substance: VENLAFAXINE HYDROCHLORIDE
     Indication: Product used for unknown indication
     Route: 065
  96. VENLAFAXINE [Suspect]
     Active Substance: VENLAFAXINE HYDROCHLORIDE
     Route: 065
  97. VENLAFAXINE [Suspect]
     Active Substance: VENLAFAXINE HYDROCHLORIDE
     Route: 065
  98. VENTOLIN [Suspect]
     Active Substance: ALBUTEROL SULFATE
     Indication: Product used for unknown indication
     Route: 065
  99. VITAMIN C [Suspect]
     Active Substance: ASCORBIC ACID
     Indication: Product used for unknown indication
     Route: 065
  100. VITAMIN C [Suspect]
     Active Substance: ASCORBIC ACID
     Route: 065
  101. WELLBUTRIN [Suspect]
     Active Substance: BUPROPION HYDROCHLORIDE
     Indication: Product used for unknown indication
     Route: 065
  102. ZOPICLONE [Suspect]
     Active Substance: ZOPICLONE
     Indication: Product used for unknown indication
     Route: 065
  103. ZOPICLONE [Suspect]
     Active Substance: ZOPICLONE
     Route: 065
  104. ZOPICLONE [Suspect]
     Active Substance: ZOPICLONE
     Route: 065

REACTIONS (38)
  - Asthma [Fatal]
  - Back pain [Fatal]
  - Bursitis [Fatal]
  - Coeliac disease [Fatal]
  - Constipation [Fatal]
  - Drug intolerance [Fatal]
  - Fluid retention [Fatal]
  - Foetal death [Fatal]
  - Food allergy [Fatal]
  - Hyperhidrosis [Fatal]
  - Thrombocytopenia [Fatal]
  - Temperature regulation disorder [Fatal]
  - Rash erythematous [Fatal]
  - Immunodeficiency [Fatal]
  - Joint swelling [Fatal]
  - Headache [Fatal]
  - Hypersensitivity [Fatal]
  - Hypertension [Fatal]
  - Fatigue [Fatal]
  - Infusion related reaction [Fatal]
  - Pain [Fatal]
  - Psoriasis [Fatal]
  - Pyrexia [Fatal]
  - Rash [Fatal]
  - Rheumatoid arthritis [Fatal]
  - Erythema [Fatal]
  - Drug hypersensitivity [Fatal]
  - Treatment failure [Fatal]
  - Upper respiratory tract infection [Fatal]
  - Hepatic enzyme increased [Fatal]
  - Intentional product misuse [Unknown]
  - Exposure during pregnancy [Unknown]
  - Prescribed overdose [Unknown]
  - Off label use [Unknown]
  - Product use issue [Unknown]
  - Contraindicated product administered [Unknown]
  - Overdose [Unknown]
  - Drug ineffective [Unknown]
